FAERS Safety Report 7403986-6 (Version None)
Quarter: 2011Q2

REPORT INFORMATION
  Report Type: 
  Country: None (occurrence: None)
  Receive Date: 20110408
  Receipt Date: 20110216
  Transmission Date: 20111010
  Serious: Yes (Other)
  Sender: FDA-Public Use
  Company Number: US-BAYER-2010-002173

PATIENT
  Age: 24 Year
  Sex: Female
  Weight: 63.946 kg

DRUGS (9)
  1. YASMIN [Suspect]
     Indication: MENORRHAGIA
  2. YASMIN [Suspect]
     Indication: DYSMENORRHOEA
  3. YAZ [Suspect]
     Indication: MENORRHAGIA
  4. YAZ [Suspect]
     Indication: DYSMENORRHOEA
  5. LEXAPRO [Concomitant]
     Indication: DEPRESSION
     Dosage: UNK
     Dates: start: 20070201, end: 20100101
  6. YASMIN [Suspect]
     Indication: CONTRACEPTION
     Dosage: UNK
     Route: 048
     Dates: start: 20021001, end: 20061101
  7. LEXAPRO [Concomitant]
     Indication: ANXIETY
  8. HYOMAX [Concomitant]
  9. YAZ [Suspect]
     Indication: CONTRACEPTION
     Dosage: UNK
     Route: 048
     Dates: start: 20061201, end: 20090130

REACTIONS (14)
  - VAGINAL HAEMORRHAGE [None]
  - CHOLECYSTITIS [None]
  - CONSTIPATION [None]
  - RECTAL HAEMORRHAGE [None]
  - DISCOMFORT [None]
  - HAEMORRHOIDS [None]
  - NAUSEA [None]
  - PROCTALGIA [None]
  - GALLBLADDER DISORDER [None]
  - MUSCLE SPASMS [None]
  - ABDOMINAL PAIN UPPER [None]
  - VAGINISMUS [None]
  - ABDOMINAL PAIN [None]
  - DIARRHOEA [None]
